FAERS Safety Report 5496447-5 (Version None)
Quarter: 2007Q4

REPORT INFORMATION
  Report Type: 
  Country: None (occurrence: None)
  Receive Date: 20071023
  Receipt Date: 20071023
  Transmission Date: 20080405
  Serious: Yes (Hospitalization)
  Sender: FDA-Public Use
  Company Number: None

PATIENT
  Sex: Male
  Weight: 65.7716 kg

DRUGS (1)
  1. SUTENT [Suspect]
     Indication: RENAL CELL CARCINOMA STAGE UNSPECIFIED
     Dosage: 37.5 DAILY ORAL 12.5 MG CAPSULES PAST 2 YRS 50 ML 1 MONTH 37.5 ML
     Route: 048

REACTIONS (1)
  - JEJUNAL PERFORATION [None]
